FAERS Safety Report 16957906 (Version 2)
Quarter: 2019Q4

REPORT INFORMATION
  Report Type: Spontaneous
  Country: JP (occurrence: JP)
  Receive Date: 20191024
  Receipt Date: 20191119
  Transmission Date: 20200122
  Serious: Yes (Hospitalization)
  Sender: FDA-Public Use
  Company Number: JP-JNJFOC-20191028029

PATIENT
  Sex: Male

DRUGS (3)
  1. RISPERDAL CONSTA [Suspect]
     Active Substance: RISPERIDONE
     Indication: SCHIZOPHRENIA
     Dosage: UNKNOWN
     Route: 030
  2. RISPERDAL CONSTA [Suspect]
     Active Substance: RISPERIDONE
     Dosage: UNKNOWN
     Route: 030
     Dates: start: 20191008, end: 20191008
  3. RISPERDAL CONSTA [Suspect]
     Active Substance: RISPERIDONE
     Dosage: UNKNOWN
     Route: 030
     Dates: start: 2019

REACTIONS (1)
  - Hospitalisation [Unknown]

NARRATIVE: CASE EVENT DATE: 201910
